FAERS Safety Report 25095386 (Version 1)
Quarter: 2025Q1

REPORT INFORMATION
  Report Type: Report from Study
  Country: US (occurrence: US)
  Receive Date: 20250319
  Receipt Date: 20250319
  Transmission Date: 20250408
  Serious: No
  Sender: AMGEN
  Company Number: US-AMGEN-USASL2025051498

PATIENT
  Age: 54 Year
  Sex: Female
  Weight: 65.5 kg

DRUGS (2)
  1. NEULASTA [Suspect]
     Active Substance: PEGFILGRASTIM
     Indication: Prophylaxis
     Route: 065
  2. NEULASTA [Suspect]
     Active Substance: PEGFILGRASTIM
     Route: 065

REACTIONS (3)
  - Drug dose omission by device [Unknown]
  - Accidental exposure to product [Unknown]
  - Device leakage [Unknown]

NARRATIVE: CASE EVENT DATE: 20240907
